FAERS Safety Report 7116263-8 (Version None)
Quarter: 2010Q4

REPORT INFORMATION
  Report Type: 
  Country: None (occurrence: None)
  Receive Date: 20101115
  Receipt Date: 20101108
  Transmission Date: 20110411
  Serious: Yes (Other)
  Sender: FDA-Public Use
  Company Number: JPI-P-012594

PATIENT
  Age: 75 Year
  Sex: Female
  Weight: 74.3899 kg

DRUGS (14)
  1. XYREM [Suspect]
     Indication: NARCOLEPSY
     Dosage: SEE IMAGE; ORAL
     Route: 048
     Dates: start: 20100601, end: 20100101
  2. UNSPECIFIED CONCOMITANT MEDICATIONS [Concomitant]
  3. MODAFINIL [Concomitant]
  4. METHYLPHENDIATE HYDROCHLORIDE [Concomitant]
  5. FELODIPINE [Concomitant]
  6. TERAZOSIN HYDROCHLORIDE [Concomitant]
  7. ATENOLOL [Concomitant]
  8. OLMESARTAN MEDOXOMIL [Concomitant]
  9. HYDROCHLOROTHIAZIDE [Concomitant]
  10. TOLTERODINE TARTRATE [Concomitant]
  11. VENLAFAXINE HYDROCHLORIDE [Concomitant]
  12. VITAMIN B-12 [Concomitant]
  13. MULTI-VITAMIN [Concomitant]
  14. LETROZOLE [Concomitant]

REACTIONS (3)
  - ENURESIS [None]
  - PARAESTHESIA [None]
  - TRANSIENT ISCHAEMIC ATTACK [None]
